FAERS Safety Report 13418247 (Version 1)
Quarter: 2017Q2

REPORT INFORMATION
  Report Type: Spontaneous
  Country: US (occurrence: US)
  Receive Date: 20170407
  Receipt Date: 20170407
  Transmission Date: 20170830
  Serious: No
  Sender: FDA-Public Use
  Company Number: US-PRINSTON PHARMACEUTICAL INC.-2017PRN00040

PATIENT
  Age: 76 Year
  Sex: Female

DRUGS (2)
  1. LEVETIRACETAM. [Suspect]
     Active Substance: LEVETIRACETAM
     Indication: SEIZURE
     Dosage: 3 TABLETS, 2X/DAY
     Route: 048
     Dates: start: 20170125, end: 20170130
  2. LEVETIRACETAM. [Suspect]
     Active Substance: LEVETIRACETAM
     Dosage: 2 TABLETS IN THE AM + 3 TABLETS IN THE PM
     Dates: start: 20170131

REACTIONS (4)
  - Anticonvulsant drug level increased [Unknown]
  - Feeling jittery [Recovered/Resolved]
  - Product substitution issue [Unknown]
  - Nervousness [Recovered/Resolved]

NARRATIVE: CASE EVENT DATE: 20170125
